FAERS Safety Report 9935642 (Version 1)
Quarter: 2014Q1

REPORT INFORMATION
  Report Type: Spontaneous
  Country: US (occurrence: US)
  Receive Date: 20140228
  Receipt Date: 20140228
  Transmission Date: 20141002
  Serious: Yes (Hospitalization, Other)
  Sender: FDA-Public Use
  Company Number: CHPA2014US003202

PATIENT
  Age: 85 Year
  Sex: Female

DRUGS (9)
  1. EXCEDRIN EXTRA STRENGTH [Suspect]
     Indication: TENSION HEADACHE
     Dosage: 2 DF, PRN
     Route: 048
  2. EXCEDRIN EXTRA STRENGTH [Suspect]
     Indication: OFF LABEL USE
     Dosage: 1 DF, PRN
     Route: 048
  3. EXCEDRIN TENSION HEADACHE [Suspect]
     Indication: TENSION HEADACHE
     Dosage: 1 DF, PRN
     Route: 048
  4. IBUPROFEN [Suspect]
  5. CIPRO ^MILES^ [Suspect]
  6. DARVOCET /00220901/ [Suspect]
  7. DEMEROL [Suspect]
  8. NORCO [Suspect]
  9. SYNTHROID [Concomitant]

REACTIONS (11)
  - Lung neoplasm malignant [Recovered/Resolved]
  - Non-Hodgkin^s lymphoma [Recovered/Resolved]
  - Atrial fibrillation [Not Recovered/Not Resolved]
  - Throat tightness [Recovered/Resolved]
  - Swollen tongue [Recovered/Resolved]
  - Dizziness [Recovered/Resolved]
  - Rash [Recovered/Resolved]
  - Nausea [Recovered/Resolved]
  - Vomiting [Recovered/Resolved]
  - Underdose [Unknown]
  - Therapeutic response unexpected [Unknown]
